FAERS Safety Report 14191680 (Version 1)
Quarter: 2017Q4

REPORT INFORMATION
  Report Type: Spontaneous
  Country: SI (occurrence: SI)
  Receive Date: 20171115
  Receipt Date: 20171115
  Transmission Date: 20180321
  Serious: Yes (Hospitalization, Other)
  Sender: FDA-Public Use
  Company Number: SI-AMGEN-SVNSP2017169248

PATIENT
  Age: 77 Year
  Sex: Female

DRUGS (8)
  1. PARSABIV [Suspect]
     Active Substance: ETELCALCETIDE HYDROCHLORIDE
     Dosage: 7.5 MG, 3 TIMES/WK
     Route: 042
     Dates: start: 20170605
  2. PARSABIV [Suspect]
     Active Substance: ETELCALCETIDE HYDROCHLORIDE
     Dosage: 10 MG, 3 TIMES/WK
     Route: 042
     Dates: start: 20170807
  3. PARSABIV [Suspect]
     Active Substance: ETELCALCETIDE HYDROCHLORIDE
     Dosage: 10 MG, 3 TIMES/WK
     Route: 042
     Dates: start: 20171103
  4. MIMPARA [Suspect]
     Active Substance: CINACALCET HYDROCHLORIDE
     Indication: HYPERPARATHYROIDISM SECONDARY
     Dosage: UNK
     Route: 065
  5. PARICALCITOL. [Concomitant]
     Active Substance: PARICALCITOL
     Dosage: 1 MUG, 3 TIMES/WK
     Dates: start: 20171103
  6. PARSABIV [Suspect]
     Active Substance: ETELCALCETIDE HYDROCHLORIDE
     Indication: HYPERPARATHYROIDISM SECONDARY
     Dosage: 2.5 MG, 3 TIMES/WK
     Route: 042
     Dates: start: 20170320
  7. PARSABIV [Suspect]
     Active Substance: ETELCALCETIDE HYDROCHLORIDE
     Dosage: 5 MG, 3 TIMES/WK
     Route: 042
     Dates: start: 20170414
  8. PARSABIV [Suspect]
     Active Substance: ETELCALCETIDE HYDROCHLORIDE
     Dosage: 7.5 MG, 3 TIMES/WK
     Route: 042
     Dates: start: 20170904

REACTIONS (6)
  - Spinal cord compression [Unknown]
  - Cervical vertebral fracture [Unknown]
  - Spinal osteoarthritis [Unknown]
  - Intervertebral discitis [Unknown]
  - Chronic kidney disease-mineral and bone disorder [Unknown]
  - Gastrointestinal disorder [Unknown]

NARRATIVE: CASE EVENT DATE: 201608
